FAERS Safety Report 4745933-1 (Version None)
Quarter: 2005Q3

REPORT INFORMATION
  Report Type: 
  Country: None (occurrence: None)
  Receive Date: 20050816
  Receipt Date: 20050324
  Transmission Date: 20060218
  Serious: Yes (Other)
  Sender: FDA-Public Use
  Company Number: SER/8/3886

PATIENT
  Sex: Female

DRUGS (1)
  1. PAROXETINE [Suspect]
     Dates: start: 20000801, end: 20020601

REACTIONS (6)
  - AGGRESSION [None]
  - ANXIETY [None]
  - DEPENDENCE [None]
  - DRUG WITHDRAWAL SYNDROME [None]
  - HEADACHE [None]
  - HYPERHIDROSIS [None]
